FAERS Safety Report 7085337-2 (Version None)
Quarter: 2010Q4

REPORT INFORMATION
  Report Type: 
  Country: None (occurrence: None)
  Receive Date: 20101105
  Receipt Date: 20101029
  Transmission Date: 20110411
  Serious: Yes (Other)
  Sender: FDA-Public Use
  Company Number: CH-PFIZER INC-2010132819

PATIENT
  Age: 46 Year
  Sex: Female

DRUGS (3)
  1. ZITHROMAX [Suspect]
     Indication: SINUSITIS
     Dosage: 500 MG, 1X/DAY
     Dates: start: 20101018, end: 20101021
  2. NEXIUM [Concomitant]
  3. TRIOFAN [Concomitant]
     Route: 045

REACTIONS (4)
  - BRADYCARDIA [None]
  - DIARRHOEA [None]
  - DYSGEUSIA [None]
  - FATIGUE [None]
